FAERS Safety Report 9068221 (Version 2)
Quarter: 2013Q1

REPORT INFORMATION
  Report Type: Spontaneous
  Country: US (occurrence: US)
  Receive Date: 20130128
  Receipt Date: 20130218
  Transmission Date: 20140127
  Serious: Yes (Other)
  Sender: FDA-Public Use
  Company Number: GXBR2013US000505

PATIENT
  Sex: Female
  Weight: 43.54 kg

DRUGS (3)
  1. AMPHETAMINE COMBINATION TABLETS [Suspect]
     Indication: ATTENTION DEFICIT/HYPERACTIVITY DISORDER
     Dosage: 15 MG, QD-BID
     Route: 048
  2. ABILIFY [Concomitant]
     Dosage: 5 MG, UNK
  3. ALPRAZOLAM [Concomitant]
     Dosage: 1 MG, UNK

REACTIONS (9)
  - Suicidal ideation [Not Recovered/Not Resolved]
  - Balance disorder [Not Recovered/Not Resolved]
  - Fatigue [Not Recovered/Not Resolved]
  - Hostility [Not Recovered/Not Resolved]
  - Thinking abnormal [Not Recovered/Not Resolved]
  - Dizziness [Not Recovered/Not Resolved]
  - Dry eye [Not Recovered/Not Resolved]
  - Eye irritation [Not Recovered/Not Resolved]
  - Drug ineffective [Not Recovered/Not Resolved]
